FAERS Safety Report 8515080-1 (Version None)
Quarter: 2012Q3

REPORT INFORMATION
  Report Type: 
  Country: None (occurrence: None)
  Receive Date: 20120717
  Receipt Date: 20120710
  Transmission Date: 20120928
  Serious: No
  Sender: FDA-Public Use
  Company Number: US-B.I. PHARMACEUTICALS,INC./RIDGEFIELD-2011-BP-27576BP

PATIENT
  Sex: Male
  Weight: 94.35 kg

DRUGS (3)
  1. TRADJENTA [Suspect]
     Indication: DIABETES MELLITUS
     Dosage: 5 MG
     Route: 048
     Dates: end: 20111004
  2. GLUCOVANCE [Concomitant]
  3. BYSTOLIC [Concomitant]

REACTIONS (1)
  - SWOLLEN TONGUE [None]
